FAERS Safety Report 8859002 (Version 2)
Quarter: 2013Q2

REPORT INFORMATION
  Report Type: Report from Study
  Country: DE (occurrence: DE)
  Receive Date: 20121024
  Receipt Date: 20130520
  Transmission Date: 20140414
  Serious: Yes (Other)
  Sender: FDA-Public Use
  Company Number: PHHY2012DE092865

PATIENT
  Sex: Female
  Weight: 86 kg

DRUGS (1)
  1. LDT600 [Suspect]
     Indication: HEPATITIS B
     Dosage: 600 MG DAILY
     Route: 048
     Dates: start: 20091026, end: 20091109

REACTIONS (3)
  - Vomiting [Recovered/Resolved]
  - Nausea [Recovered/Resolved]
  - Aspartate aminotransferase increased [Recovered/Resolved]
